FAERS Safety Report 9668906 (Version 1)
Quarter: 2013Q4

REPORT INFORMATION
  Report Type: Spontaneous
  Country: US (occurrence: None)
  Receive Date: 20131104
  Receipt Date: 20131104
  Transmission Date: 20140711
  Serious: Yes (Life-Threatening, Hospitalization)
  Sender: FDA-Public Use
  Company Number: None

PATIENT
  Age: 14 Year
  Sex: Female
  Weight: 54.43 kg

DRUGS (1)
  1. PRO AIR [Suspect]
     Indication: ASTHMA
     Dosage: RESCUE INHALER, AS NEEDED, TAKEN BY MOUTH
     Route: 048
     Dates: start: 20131012, end: 20131012

REACTIONS (2)
  - Device ineffective [None]
  - Device failure [None]
